FAERS Safety Report 20419033 (Version 1)
Quarter: 2022Q1

REPORT INFORMATION
  Report Type: Spontaneous
  Country: None (occurrence: US)
  Receive Date: 20220203
  Receipt Date: 20220203
  Transmission Date: 20220423
  Serious: No
  Sender: FDA-Public Use
  Company Number: US-MLV Pharma LLC-2124559

PATIENT
  Age: 71 Year
  Sex: Male

DRUGS (7)
  1. ROPINIROLE HYDROCHLORIDE [Suspect]
     Active Substance: ROPINIROLE HYDROCHLORIDE
  2. CARVEDILOL [Concomitant]
     Active Substance: CARVEDILOL
  3. WARFARIN [Concomitant]
     Active Substance: WARFARIN
  4. FUROSEMIDE [Concomitant]
     Active Substance: FUROSEMIDE
  5. CANAGLIFLOZIN [Concomitant]
     Active Substance: CANAGLIFLOZIN
  6. INSULIN NOS [Concomitant]
     Active Substance: INSULIN NOS
  7. ACETAMINOPHEN [Concomitant]
     Active Substance: ACETAMINOPHEN

REACTIONS (4)
  - Orthostatic hypotension [Recovered/Resolved]
  - Asthenia [Recovered/Resolved]
  - Balance disorder [Recovered/Resolved]
  - Fall [Recovered/Resolved]
